FAERS Safety Report 13473667 (Version 1)
Quarter: 2017Q2

REPORT INFORMATION
  Report Type: Spontaneous
  Country: US (occurrence: US)
  Receive Date: 20170424
  Receipt Date: 20170424
  Transmission Date: 20170830
  Serious: Yes (Other)
  Sender: FDA-Public Use
  Company Number: US-WARNER CHILCOTT-2016-000317

PATIENT
  Age: 87 Year
  Sex: Female

DRUGS (2)
  1. ACTONEL [Suspect]
     Active Substance: RISEDRONATE SODIUM
     Indication: OSTEOPOROSIS
     Dosage: UNKNOWN
     Route: 048
  2. PREDNISONE. [Suspect]
     Active Substance: PREDNISONE
     Indication: PULMONARY FIBROSIS
     Dosage: 10 MG DAILY
     Route: 065

REACTIONS (7)
  - Tooth disorder [Unknown]
  - Osteonecrosis of jaw [Unknown]
  - Bone erosion [Unknown]
  - Exposed bone in jaw [Unknown]
  - Pain in jaw [Unknown]
  - Drug interaction [Unknown]
  - Gingival abscess [Unknown]

NARRATIVE: CASE EVENT DATE: 2011
